FAERS Safety Report 19867769 (Version 2)
Quarter: 2021Q4

REPORT INFORMATION
  Report Type: Spontaneous
  Country: US (occurrence: US)
  Receive Date: 20210922
  Receipt Date: 20211003
  Transmission Date: 20220303
  Serious: No
  Sender: FDA-Public Use
  Company Number: US-AMGEN-USASP2021143244

PATIENT
  Age: 64 Year
  Sex: Male
  Weight: 105.67 kg

DRUGS (9)
  1. REPATHA [Suspect]
     Active Substance: EVOLOCUMAB
     Indication: Blood cholesterol abnormal
     Dosage: 140 MILLIGRAM, Q2WK
     Route: 065
     Dates: start: 20210611
  2. REPATHA [Suspect]
     Active Substance: EVOLOCUMAB
     Indication: Type V hyperlipidaemia
  3. REPATHA [Suspect]
     Active Substance: EVOLOCUMAB
     Indication: Arteriosclerosis coronary artery
  4. ASPIRIN [Concomitant]
     Active Substance: ASPIRIN
     Dosage: 81 MILLIGRAM, QD
     Route: 048
  5. ZETIA [Concomitant]
     Active Substance: EZETIMIBE
     Dosage: 10 MILLIGRAM, QD
     Route: 048
  6. COREG [Concomitant]
     Active Substance: CARVEDILOL
     Dosage: 25 MILLIGRAM, BID
     Route: 048
  7. BENICAR HCT [Concomitant]
     Active Substance: HYDROCHLOROTHIAZIDE\OLMESARTAN MEDOXOMIL
     Dosage: (40-25 MG), QD
     Route: 048
  8. PRASUGREL [Concomitant]
     Active Substance: PRASUGREL
     Dosage: 10 MILLIGRAM, QD
     Route: 048
  9. LIVALO [Concomitant]
     Active Substance: PITAVASTATIN CALCIUM
     Dosage: 4 MILLIGRAM, QD

REACTIONS (2)
  - Product storage error [Unknown]
  - Incorrect disposal of product [Unknown]

NARRATIVE: CASE EVENT DATE: 20210914
